FAERS Safety Report 8421911-6 (Version None)
Quarter: 2012Q2

REPORT INFORMATION
  Report Type: 
  Country: None (occurrence: None)
  Receive Date: 20120608
  Receipt Date: 20120531
  Transmission Date: 20120825
  Serious: Yes (Death)
  Sender: FDA-Public Use
  Company Number: JP-ELI_LILLY_AND_COMPANY-JP201107007134

PATIENT
  Age: 75 Year
  Sex: Female

DRUGS (1)
  1. FORTEO [Suspect]
     Dosage: UNK
     Route: 058
     Dates: start: 20110529

REACTIONS (6)
  - CONSTIPATION [None]
  - WEIGHT DECREASED [None]
  - DEATH [None]
  - DECREASED APPETITE [None]
  - NASOPHARYNGITIS [None]
  - DIARRHOEA [None]
